FAERS Safety Report 21947112 (Version 1)
Quarter: 2023Q1

REPORT INFORMATION
  Report Type: Spontaneous
  Country: CN (occurrence: CN)
  Receive Date: 20230202
  Receipt Date: 20230202
  Transmission Date: 20230418
  Serious: Yes (Other)
  Sender: FDA-Public Use
  Company Number: CN-NAPPMUNDI-GBR-2023-0104762

PATIENT
  Age: 70 Year
  Sex: Male
  Weight: 46 kg

DRUGS (1)
  1. OXYCODONE HYDROCHLORIDE [Suspect]
     Active Substance: OXYCODONE HYDROCHLORIDE
     Indication: Pain
     Dosage: 40 MILLIGRAM, BID
     Route: 065
     Dates: start: 20230113, end: 20230118

REACTIONS (4)
  - Restlessness [Recovering/Resolving]
  - Urinary retention [Recovering/Resolving]
  - Hallucination [Recovering/Resolving]
  - Somnolence [Recovering/Resolving]

NARRATIVE: CASE EVENT DATE: 20230116
